FAERS Safety Report 14900307 (Version 1)
Quarter: 2018Q2

REPORT INFORMATION
  Report Type: Spontaneous
  Country: GB (occurrence: GB)
  Receive Date: 20180516
  Receipt Date: 20180516
  Transmission Date: 20180711
  Serious: Yes (Other)
  Sender: FDA-Public Use
  Company Number: GB-ELI_LILLY_AND_COMPANY-GB201805003049

PATIENT
  Age: 47 Year
  Sex: Male
  Weight: 72.8 kg

DRUGS (2)
  1. ZYPADHERA [Suspect]
     Active Substance: OLANZAPINE PAMOATE
     Indication: SCHIZOPHRENIA
     Dosage: 405 MG, UNKNOWN
     Route: 030
     Dates: start: 201201
  2. OLANZAPINE. [Concomitant]
     Active Substance: OLANZAPINE
     Dosage: 5 MG, EACH EVENING
     Route: 048

REACTIONS (7)
  - Dysarthria [Unknown]
  - Post procedural complication [Recovering/Resolving]
  - Balance disorder [Unknown]
  - Restlessness [Unknown]
  - Dizziness [Unknown]
  - Vomiting [Unknown]
  - Heart rate increased [Unknown]

NARRATIVE: CASE EVENT DATE: 20180424
